FAERS Safety Report 9216868 (Version 2)
Quarter: 2013Q1

REPORT INFORMATION
  Report Type: Spontaneous
  Country: US (occurrence: None)
  Receive Date: 20130329
  Receipt Date: 20130329
  Transmission Date: 20140127
  Serious: Yes (Other)
  Sender: FDA-Public Use
  Company Number: JPI-P-030242

PATIENT
  Age: 39 Year
  Sex: Female

DRUGS (4)
  1. XYREM [Suspect]
     Indication: INSOMNIA
     Dosage: 4.5 GM (2.25 GM, 2 IN 1 D),ORAL
     Route: 048
     Dates: start: 20121105
  2. MORPHINE [Concomitant]
  3. OXYCODONE [Concomitant]
  4. CLONAZEPAM [Concomitant]

REACTIONS (16)
  - Head injury [None]
  - Fall [None]
  - Amnesia [None]
  - Insomnia [None]
  - Gastric disorder [None]
  - Impaired gastric emptying [None]
  - Pancreatic enzymes decreased [None]
  - Pneumonia [None]
  - Pain [None]
  - Night sweats [None]
  - Incorrect dose administered [None]
  - Treatment noncompliance [None]
  - Malabsorption [None]
  - Dyspepsia [None]
  - Catheter site infection [None]
  - Adverse event [None]
